FAERS Safety Report 19647598 (Version 6)
Quarter: 2021Q4

REPORT INFORMATION
  Report Type: Report from Study
  Country: DE (occurrence: DE)
  Receive Date: 20210802
  Receipt Date: 20211025
  Transmission Date: 20220304
  Serious: Yes (Hospitalization, Other)
  Sender: FDA-Public Use
  Company Number: DE-PFM-2020-20708

PATIENT
  Age: 53 Year
  Sex: Male

DRUGS (14)
  1. ENCORAFENIB [Suspect]
     Active Substance: ENCORAFENIB
     Indication: Malignant melanoma
     Dosage: 450 MG, DAILY
     Route: 048
     Dates: start: 20200909, end: 20210504
  2. BINIMETINIB [Suspect]
     Active Substance: BINIMETINIB
     Indication: Malignant melanoma
     Dosage: 45 MG, BID (2/DAY)
     Route: 048
     Dates: start: 20200909, end: 20210504
  3. NIVOLUMAB [Suspect]
     Active Substance: NIVOLUMAB
     Dosage: UNK
     Route: 065
     Dates: start: 20210505
  4. IPILIMUMAB [Suspect]
     Active Substance: IPILIMUMAB
     Dosage: UNK
     Route: 065
     Dates: start: 20210505
  5. VEMURAFENIB [Suspect]
     Active Substance: VEMURAFENIB
     Dosage: UNK
     Route: 065
     Dates: start: 20210601
  6. COBIMETINIB [Suspect]
     Active Substance: COBIMETINIB
     Dosage: UNK
     Route: 065
     Dates: start: 20210601
  7. METOCLOPRAMIDE HYDROCHLORIDE [Suspect]
     Active Substance: METOCLOPRAMIDE HYDROCHLORIDE
     Indication: Nausea
     Dosage: 1 DF, QD (1/DAY)
     Route: 065
     Dates: start: 20200909
  8. OMEPRAZOLE [Suspect]
     Active Substance: OMEPRAZOLE
     Indication: Nausea
     Dosage: UNK
     Route: 065
     Dates: start: 20201124
  9. DEXAMETHASONE SODIUM PHOSPHATE [Suspect]
     Active Substance: DEXAMETHASONE SODIUM PHOSPHATE
     Indication: Epilepsy
     Dosage: UNK
     Route: 065
  10. LEVETIRACETAM [Concomitant]
     Active Substance: LEVETIRACETAM
     Indication: Epilepsy
     Dosage: UNK
     Route: 065
  11. BISOPROLOL FUMARATE [Concomitant]
     Active Substance: BISOPROLOL FUMARATE
     Dosage: 2.5 MG, QD (1/DAY)
     Route: 065
     Dates: start: 2018
  12. PANTOPRAZOLE SODIUM [Concomitant]
     Active Substance: PANTOPRAZOLE SODIUM
     Dosage: 20 MG, QD (1/DAY)
     Route: 065
     Dates: start: 2001, end: 20201123
  13. RAMIPRIL [Concomitant]
     Active Substance: RAMIPRIL
     Dosage: 2.5 MG, BID (2/DAY)
     Route: 065
     Dates: start: 2015
  14. BETAMETHASONE [Concomitant]
     Active Substance: BETAMETHASONE
     Indication: Rash
     Dosage: UNK
     Route: 065
     Dates: start: 20210602

REACTIONS (15)
  - Cerebral haemorrhage [Recovered/Resolved with Sequelae]
  - Brain stem haemorrhage [Unknown]
  - Hemiparesis [Unknown]
  - Neoplasm progression [Recovered/Resolved]
  - Dyspnoea [Unknown]
  - Hair growth abnormal [Recovered/Resolved]
  - Visual impairment [Recovered/Resolved]
  - Anal haemorrhage [Recovered/Resolved]
  - Fatigue [Unknown]
  - Nausea [Unknown]
  - Vertigo [Recovered/Resolved]
  - Headache [Unknown]
  - Rash [Unknown]
  - Aphasia [Unknown]
  - Dysphagia [Unknown]

NARRATIVE: CASE EVENT DATE: 20200909
